FAERS Safety Report 6225126-1 (Version None)
Quarter: 2009Q2

REPORT INFORMATION
  Report Type: 
  Country: None (occurrence: None)
  Receive Date: 20090612
  Receipt Date: 20090407
  Transmission Date: 20091009
  Serious: No
  Sender: FDA-Public Use
  Company Number: US-ABBOTT-09P-163-0566986-00

PATIENT
  Sex: Female
  Weight: 65.83 kg

DRUGS (6)
  1. HUMIRA [Suspect]
     Indication: ANKYLOSING SPONDYLITIS
     Route: 058
     Dates: start: 20070101, end: 20080101
  2. HUMIRA [Suspect]
     Route: 058
     Dates: start: 20080101
  3. CYMBALTA [Concomitant]
     Indication: FIBROMYALGIA
  4. CYMBALTA [Concomitant]
     Indication: DEPRESSION
  5. LYRICA [Concomitant]
     Indication: PAIN
  6. AMBIEN [Concomitant]
     Indication: SLEEP DISORDER THERAPY

REACTIONS (4)
  - HEADACHE [None]
  - JOINT STIFFNESS [None]
  - MUSCULOSKELETAL STIFFNESS [None]
  - VITAMIN D DECREASED [None]
